FAERS Safety Report 23175410 (Version 3)
Quarter: 2024Q1

REPORT INFORMATION
  Report Type: Spontaneous
  Country: CA (occurrence: CA)
  Receive Date: 20231113
  Receipt Date: 20240326
  Transmission Date: 20240410
  Serious: Yes (Hospitalization, Other)
  Sender: FDA-Public Use
  Company Number: US-002147023-NVSC2020CA240249

PATIENT
  Age: 40 Year
  Sex: Male

DRUGS (126)
  1. ARIPIPRAZOLE [Suspect]
     Active Substance: ARIPIPRAZOLE
     Indication: Schizophrenia
     Dosage: 30 MG
     Route: 065
  2. ABILIFY [Suspect]
     Active Substance: ARIPIPRAZOLE
     Indication: Schizophrenia
     Dosage: 30 MG
     Route: 065
  3. ABILIFY [Suspect]
     Active Substance: ARIPIPRAZOLE
     Dosage: UNK
     Route: 065
  4. AMISULPRIDE [Suspect]
     Active Substance: AMISULPRIDE
     Dosage: 1200 MG
     Route: 065
  5. AMISULPRIDE [Suspect]
     Active Substance: AMISULPRIDE
     Indication: Schizophrenia
     Dosage: 30 MG
     Route: 065
  6. ASENAPINE MALEATE [Suspect]
     Active Substance: ASENAPINE MALEATE
     Indication: Schizophrenia
     Dosage: 100 MG
     Route: 065
  7. CLOZAPINE [Suspect]
     Active Substance: CLOZAPINE
     Indication: Psychotic disorder
     Dosage: 350 MG, QD
     Route: 048
  8. CLOZAPINE [Suspect]
     Active Substance: CLOZAPINE
     Indication: Schizophrenia
     Dosage: 350 MG, QD
     Route: 048
  9. CLOZAPINE [Suspect]
     Active Substance: CLOZAPINE
     Dosage: 350 MG, QD
     Route: 048
  10. CLOZAPINE [Suspect]
     Active Substance: CLOZAPINE
     Dosage: 350 MG, QD
     Route: 048
  11. CLOZAPINE [Suspect]
     Active Substance: CLOZAPINE
     Dosage: 350 MG, QD
     Route: 065
  12. CLOZAPINE [Suspect]
     Active Substance: CLOZAPINE
     Dosage: 350 MG, QD
     Route: 065
  13. CLOZAPINE [Suspect]
     Active Substance: CLOZAPINE
     Dosage: 350 MG, QD
     Route: 065
  14. CLOZAPINE [Suspect]
     Active Substance: CLOZAPINE
     Dosage: 350 MG, QD
     Route: 065
  15. CITALOPRAM HYDROBROMIDE [Suspect]
     Active Substance: CITALOPRAM HYDROBROMIDE
     Indication: Depression
     Dosage: 250 MG
     Route: 065
  16. CITALOPRAM HYDROBROMIDE [Suspect]
     Active Substance: CITALOPRAM HYDROBROMIDE
     Dosage: 250 MG
     Route: 065
  17. CITALOPRAM HYDROBROMIDE [Suspect]
     Active Substance: CITALOPRAM HYDROBROMIDE
     Indication: Schizophrenia
     Dosage: 80 MG
     Route: 065
  18. CITALOPRAM HYDROBROMIDE [Suspect]
     Active Substance: CITALOPRAM HYDROBROMIDE
     Dosage: 80 MG
     Route: 065
  19. CITALOPRAM HYDROBROMIDE [Suspect]
     Active Substance: CITALOPRAM HYDROBROMIDE
     Dosage: 80 MG
     Route: 065
  20. CITALOPRAM HYDROBROMIDE [Suspect]
     Active Substance: CITALOPRAM HYDROBROMIDE
     Dosage: UNK
     Route: 065
  21. CITALOPRAM HYDROBROMIDE [Suspect]
     Active Substance: CITALOPRAM HYDROBROMIDE
     Dosage: UNK
     Route: 065
  22. CLOMIPRAMINE [Suspect]
     Active Substance: CLOMIPRAMINE
     Indication: Schizophrenia
     Dosage: 250 MG
     Route: 065
  23. FLUOXETINE HYDROCHLORIDE [Suspect]
     Active Substance: FLUOXETINE HYDROCHLORIDE
     Indication: Schizophrenia
     Dosage: 80 MG
     Route: 065
  24. FLUPENTIXOL [Suspect]
     Active Substance: FLUPENTIXOL
     Indication: Schizophrenia
     Dosage: 6 MG
     Route: 065
  25. FLUPENTIXOL [Suspect]
     Active Substance: FLUPENTIXOL
     Dosage: 60 MG
     Route: 065
  26. GABAPENTIN [Suspect]
     Active Substance: GABAPENTIN
     Dosage: 1800 MG
     Route: 065
  27. GABAPENTIN [Suspect]
     Active Substance: GABAPENTIN
     Dosage: 1800 MG
     Route: 065
  28. GABAPENTIN [Suspect]
     Active Substance: GABAPENTIN
     Indication: Schizophrenia
     Dosage: 600 MG
     Route: 065
  29. HALOPERIDOL [Suspect]
     Active Substance: HALOPERIDOL
     Indication: Product used for unknown indication
     Dosage: 5 MG
     Route: 065
  30. HALOPERIDOL DECANOATE [Suspect]
     Active Substance: HALOPERIDOL DECANOATE
     Dosage: 5 MG
     Route: 065
  31. HALOPERIDOL DECANOATE [Suspect]
     Active Substance: HALOPERIDOL DECANOATE
     Dosage: 5 MG
     Route: 065
  32. HALOPERIDOL DECANOATE [Suspect]
     Active Substance: HALOPERIDOL DECANOATE
     Indication: Schizophrenia
     Dosage: 5 MG (LIQUID)
     Route: 030
  33. LITHIUM [Suspect]
     Active Substance: LITHIUM
     Indication: Schizophrenia
     Dosage: 1050 MG, QD
     Route: 065
  34. LITHIUM [Suspect]
     Active Substance: LITHIUM
     Dosage: 1800 MG, QD
     Route: 065
  35. LITHIUM [Suspect]
     Active Substance: LITHIUM
     Dosage: 2400 MG, QD
     Route: 065
  36. LITHIUM CARBONATE [Suspect]
     Active Substance: LITHIUM CARBONATE
     Indication: Affective disorder
     Dosage: 1050 MG
     Route: 065
  37. LITHIUM CARBONATE [Suspect]
     Active Substance: LITHIUM CARBONATE
     Indication: Schizophrenia
     Dosage: 1050 MG
     Route: 065
  38. LITHIUM CARBONATE [Suspect]
     Active Substance: LITHIUM CARBONATE
     Dosage: 1050 MG
     Route: 065
  39. LITHIUM CARBONATE [Suspect]
     Active Substance: LITHIUM CARBONATE
     Dosage: 1050 MG
     Route: 065
  40. LITHIUM CARBONATE [Suspect]
     Active Substance: LITHIUM CARBONATE
     Dosage: 1800 MG, QD
     Route: 065
  41. LITHIUM CARBONATE [Suspect]
     Active Substance: LITHIUM CARBONATE
     Dosage: 1800 MG, QD
     Route: 065
  42. LITHIUM CARBONATE [Suspect]
     Active Substance: LITHIUM CARBONATE
     Dosage: 1800 MG
     Route: 065
  43. LITHIUM CARBONATE [Suspect]
     Active Substance: LITHIUM CARBONATE
     Dosage: 1800 MG
     Route: 065
  44. LITHIUM CARBONATE [Suspect]
     Active Substance: LITHIUM CARBONATE
     Dosage: 2400 MG, QD
     Route: 065
  45. LITHIUM CARBONATE [Suspect]
     Active Substance: LITHIUM CARBONATE
     Dosage: 2400 MG, QD
     Route: 065
  46. LITHIUM CARBONATE [Suspect]
     Active Substance: LITHIUM CARBONATE
     Dosage: 2400 MG
     Route: 065
  47. LITHIUM CARBONATE [Suspect]
     Active Substance: LITHIUM CARBONATE
     Dosage: 2400 MG
     Route: 065
  48. LOXAPINE [Suspect]
     Active Substance: LOXAPINE
     Indication: Product used for unknown indication
     Dosage: 200 MG
     Route: 065
  49. LOXAPINE [Suspect]
     Active Substance: LOXAPINE
     Dosage: 50 MG
     Route: 065
  50. LOXAPINE [Suspect]
     Active Substance: LOXAPINE
     Dosage: 75 MG
     Route: 065
  51. LOXAPINE SUCCINATE [Suspect]
     Active Substance: LOXAPINE SUCCINATE
     Dosage: 200 MG
     Route: 065
  52. LOXAPINE SUCCINATE [Suspect]
     Active Substance: LOXAPINE SUCCINATE
     Dosage: 200 MG
     Route: 065
  53. LOXAPINE SUCCINATE [Suspect]
     Active Substance: LOXAPINE SUCCINATE
     Indication: Schizophrenia
     Dosage: 50 MG
     Route: 065
  54. LOXAPINE SUCCINATE [Suspect]
     Active Substance: LOXAPINE SUCCINATE
     Dosage: 50 MG
     Route: 065
  55. LOXAPINE SUCCINATE [Suspect]
     Active Substance: LOXAPINE SUCCINATE
     Dosage: 75 MG
     Route: 065
  56. LOXAPINE SUCCINATE [Suspect]
     Active Substance: LOXAPINE SUCCINATE
     Dosage: 75 MG
     Route: 065
  57. OLANZAPINE [Suspect]
     Active Substance: OLANZAPINE
     Dosage: 15 MG
     Route: 065
  58. OLANZAPINE [Suspect]
     Active Substance: OLANZAPINE
     Dosage: 15 MG
     Route: 065
  59. OLANZAPINE [Suspect]
     Active Substance: OLANZAPINE
     Dosage: 15 MG
     Route: 065
  60. OLANZAPINE [Suspect]
     Active Substance: OLANZAPINE
     Dosage: 15 MG
     Route: 065
  61. OLANZAPINE [Suspect]
     Active Substance: OLANZAPINE
     Indication: Psychotic disorder
     Dosage: 20 MG
     Route: 065
  62. OLANZAPINE [Suspect]
     Active Substance: OLANZAPINE
     Dosage: 20 MG
     Route: 065
  63. OLANZAPINE [Suspect]
     Active Substance: OLANZAPINE
     Dosage: 20 MG
     Route: 065
  64. OLANZAPINE [Suspect]
     Active Substance: OLANZAPINE
     Dosage: 20 MG
     Route: 065
  65. OLANZAPINE [Suspect]
     Active Substance: OLANZAPINE
     Indication: Schizophrenia
     Dosage: 40 MG, QD
     Route: 065
  66. OLANZAPINE [Suspect]
     Active Substance: OLANZAPINE
     Dosage: 40 MG, QD
     Route: 065
  67. OLANZAPINE [Suspect]
     Active Substance: OLANZAPINE
     Dosage: 40 MG, QD
     Route: 065
  68. OLANZAPINE [Suspect]
     Active Substance: OLANZAPINE
     Dosage: 40 MG, QD
     Route: 065
  69. PERPHENAZINE [Suspect]
     Active Substance: PERPHENAZINE
     Indication: Psychotic disorder
     Dosage: 32 MG
     Route: 065
  70. PERPHENAZINE [Suspect]
     Active Substance: PERPHENAZINE
     Dosage: 32 MG
     Route: 065
  71. PERPHENAZINE [Suspect]
     Active Substance: PERPHENAZINE
     Dosage: 32 MG
     Route: 065
  72. PERPHENAZINE [Suspect]
     Active Substance: PERPHENAZINE
     Dosage: 32 MG
     Route: 065
  73. PERPHENAZINE [Suspect]
     Active Substance: PERPHENAZINE
     Dosage: UNK
     Route: 065
  74. PERPHENAZINE [Suspect]
     Active Substance: PERPHENAZINE
     Dosage: UNK
     Route: 065
  75. PERPHENAZINE [Suspect]
     Active Substance: PERPHENAZINE
     Dosage: UNK
     Route: 065
  76. PERPHENAZINE [Suspect]
     Active Substance: PERPHENAZINE
     Dosage: UNK
     Route: 065
  77. PERPHENAZINE [Suspect]
     Active Substance: PERPHENAZINE
     Dosage: UNK
     Route: 065
  78. PERPHENAZINE [Suspect]
     Active Substance: PERPHENAZINE
     Indication: Schizophrenia
     Route: 065
  79. QUETIAPINE FUMARATE [Suspect]
     Active Substance: QUETIAPINE FUMARATE
     Indication: Psychotic disorder
     Dosage: 600 MG, QD
     Route: 048
  80. QUETIAPINE FUMARATE [Suspect]
     Active Substance: QUETIAPINE FUMARATE
     Indication: Schizophrenia
     Dosage: 600 MG, QD
     Route: 048
  81. QUETIAPINE FUMARATE [Suspect]
     Active Substance: QUETIAPINE FUMARATE
     Dosage: 600 MG, QD
     Route: 048
  82. QUETIAPINE FUMARATE [Suspect]
     Active Substance: QUETIAPINE FUMARATE
     Dosage: 600 MG, QD
     Route: 048
  83. QUETIAPINE FUMARATE [Suspect]
     Active Substance: QUETIAPINE FUMARATE
     Dosage: 600 MG, QD
     Route: 048
  84. QUETIAPINE FUMARATE [Suspect]
     Active Substance: QUETIAPINE FUMARATE
     Dosage: 600 MG, QD
     Route: 048
  85. QUETIAPINE FUMARATE [Suspect]
     Active Substance: QUETIAPINE FUMARATE
     Dosage: 600 MG, QD
     Route: 048
  86. QUETIAPINE FUMARATE [Suspect]
     Active Substance: QUETIAPINE FUMARATE
     Dosage: 600 MG, QD
     Route: 048
  87. QUETIAPINE FUMARATE [Suspect]
     Active Substance: QUETIAPINE FUMARATE
     Dosage: 600 MG, QD
     Route: 048
  88. QUETIAPINE FUMARATE [Suspect]
     Active Substance: QUETIAPINE FUMARATE
     Dosage: 600 MG
     Route: 048
  89. QUETIAPINE FUMARATE [Suspect]
     Active Substance: QUETIAPINE FUMARATE
     Dosage: UNK
     Route: 065
  90. QUETIAPINE [Suspect]
     Active Substance: QUETIAPINE
     Indication: Product used for unknown indication
     Dosage: 600 MG
     Route: 065
  91. RISPERIDONE [Suspect]
     Active Substance: RISPERIDONE
     Dosage: 3 MG, QD
     Route: 065
  92. RISPERIDONE [Suspect]
     Active Substance: RISPERIDONE
     Indication: Schizophrenia
     Dosage: 3 MG
     Route: 065
  93. RISPERIDONE [Suspect]
     Active Substance: RISPERIDONE
     Dosage: 3 MG
     Route: 065
  94. RISPERIDONE [Suspect]
     Active Substance: RISPERIDONE
     Dosage: 3 MG
     Route: 065
  95. RISPERIDONE [Suspect]
     Active Substance: RISPERIDONE
     Dosage: 3 MG
     Route: 065
  96. RISPERIDONE [Suspect]
     Active Substance: RISPERIDONE
     Dosage: 3 MG
     Route: 065
  97. RISPERIDONE [Suspect]
     Active Substance: RISPERIDONE
     Dosage: 3 MG
     Route: 065
  98. RISPERIDONE [Suspect]
     Active Substance: RISPERIDONE
     Dosage: 3 MG
     Route: 065
  99. RISPERIDONE [Suspect]
     Active Substance: RISPERIDONE
     Indication: Psychotic disorder
     Dosage: 4 MG
     Route: 065
  100. RISPERIDONE [Suspect]
     Active Substance: RISPERIDONE
     Dosage: 4 MG
     Route: 065
  101. RISPERIDONE [Suspect]
     Active Substance: RISPERIDONE
     Dosage: 4 MG
     Route: 065
  102. RISPERIDONE [Suspect]
     Active Substance: RISPERIDONE
     Dosage: 4 MG
     Route: 065
  103. RISPERIDONE [Suspect]
     Active Substance: RISPERIDONE
     Dosage: 8 MG, QD
     Route: 065
  104. RISPERIDONE [Suspect]
     Active Substance: RISPERIDONE
     Dosage: 8 MG, QD
     Route: 065
  105. RISPERIDONE [Suspect]
     Active Substance: RISPERIDONE
     Dosage: 8 MG, QD
     Route: 065
  106. RISPERIDONE [Suspect]
     Active Substance: RISPERIDONE
     Dosage: 8 MG, QD
     Route: 065
  107. SAPHRIS [Suspect]
     Active Substance: ASENAPINE MALEATE
     Indication: Product used for unknown indication
     Dosage: 100 MG
     Route: 065
  108. SAPHRIS [Suspect]
     Active Substance: ASENAPINE MALEATE
     Dosage: 600 MG
     Route: 065
  109. SAPHRIS [Suspect]
     Active Substance: ASENAPINE MALEATE
     Dosage: UNK
     Route: 048
  110. THIORIDAZINE [Suspect]
     Active Substance: THIORIDAZINE
     Dosage: UNK
     Route: 048
  111. THIORIDAZINE [Suspect]
     Active Substance: THIORIDAZINE
     Dosage: UNK
     Route: 048
  112. THIORIDAZINE [Suspect]
     Active Substance: THIORIDAZINE
     Indication: Schizophrenia
     Dosage: UNK
     Route: 065
  113. TRIFLUOPERAZINE [Suspect]
     Active Substance: TRIFLUOPERAZINE HYDROCHLORIDE
     Indication: Schizophrenia
     Dosage: 50 MG
     Route: 065
  114. TRIFLUOPERAZINE HYDROCHLORIDE [Suspect]
     Active Substance: TRIFLUOPERAZINE HYDROCHLORIDE
     Indication: Product used for unknown indication
     Dosage: 50 MG
     Route: 065
  115. VALPROATE SODIUM [Suspect]
     Active Substance: VALPROATE SODIUM
     Dosage: 1000 MG
     Route: 048
  116. VALPROATE SODIUM [Suspect]
     Active Substance: VALPROATE SODIUM
     Dosage: 1000 MG
     Route: 048
  117. VALPROATE SODIUM [Suspect]
     Active Substance: VALPROATE SODIUM
     Indication: Schizophrenia
     Dosage: 1250 MG
     Route: 065
  118. ZIPRASIDONE [Suspect]
     Active Substance: ZIPRASIDONE
     Indication: Product used for unknown indication
     Dosage: 100 MG
     Route: 065
  119. ZIPRASIDONE HYDROCHLORIDE [Suspect]
     Active Substance: ZIPRASIDONE HYDROCHLORIDE
     Dosage: 100 MG, QD
     Route: 048
  120. ZIPRASIDONE HYDROCHLORIDE [Suspect]
     Active Substance: ZIPRASIDONE HYDROCHLORIDE
     Dosage: 100 MG, QD
     Route: 048
  121. ZIPRASIDONE HYDROCHLORIDE [Suspect]
     Active Substance: ZIPRASIDONE HYDROCHLORIDE
     Indication: Schizophrenia
     Dosage: 100 MG
     Route: 065
  122. ZIPRASIDONE HYDROCHLORIDE [Suspect]
     Active Substance: ZIPRASIDONE HYDROCHLORIDE
     Dosage: 100 MG
     Route: 065
  123. ZIPRASIDONE MESYLATE [Suspect]
     Active Substance: ZIPRASIDONE MESYLATE
     Indication: Schizophrenia
     Dosage: 100 MG
     Route: 048
  124. ZIPRASIDONE MESYLATE [Suspect]
     Active Substance: ZIPRASIDONE MESYLATE
     Dosage: 100 MG
     Route: 048
  125. ZIPRASIDONE MESYLATE [Suspect]
     Active Substance: ZIPRASIDONE MESYLATE
     Dosage: UNK
     Route: 065
  126. ZIPRASIDONE MESYLATE [Suspect]
     Active Substance: ZIPRASIDONE MESYLATE
     Dosage: UNK
     Route: 065

REACTIONS (21)
  - Antipsychotic drug level below therapeutic [Unknown]
  - Disinhibition [Unknown]
  - Toxicity to various agents [Unknown]
  - Suicide attempt [Unknown]
  - Obsessive-compulsive disorder [Unknown]
  - Euphoric mood [Unknown]
  - Akathisia [Unknown]
  - Increased appetite [Unknown]
  - Irritability [Unknown]
  - Obesity [Unknown]
  - Hypertension [Unknown]
  - Dyslipidaemia [Unknown]
  - Weight increased [Unknown]
  - Leukopenia [Unknown]
  - Prescribed overdose [Unknown]
  - Schizoaffective disorder [Unknown]
  - Therapeutic product effect variable [Unknown]
  - Product use in unapproved indication [Unknown]
  - Off label use [Unknown]
  - Therapeutic product effect incomplete [Unknown]
  - Drug ineffective [Unknown]
